APPROVED DRUG PRODUCT: CELECOXIB
Active Ingredient: CELECOXIB
Strength: 50MG
Dosage Form/Route: CAPSULE;ORAL
Application: A204776 | Product #001 | TE Code: AB
Applicant: MICRO LABS LTD
Approved: Apr 30, 2018 | RLD: No | RS: No | Type: RX